FAERS Safety Report 6324842-0 (Version None)
Quarter: 2009Q3

REPORT INFORMATION
  Report Type: 
  Country: None (occurrence: None)
  Receive Date: 20090824
  Receipt Date: 20090622
  Transmission Date: 20100115
  Serious: No
  Sender: FDA-Public Use
  Company Number: US-ABBOTT-09P-163-0581313-00

PATIENT
  Sex: Male
  Weight: 136.2 kg

DRUGS (1)
  1. NIASPAN [Suspect]
     Indication: BLOOD TRIGLYCERIDES ABNORMAL
     Route: 048
     Dates: start: 20090601, end: 20090619

REACTIONS (2)
  - INCORRECT DRUG ADMINISTRATION DURATION [None]
  - PRURITUS [None]
